FAERS Safety Report 26087465 (Version 1)
Quarter: 2025Q4

REPORT INFORMATION
  Report Type: Spontaneous
  Country: JP (occurrence: JP)
  Receive Date: 20251125
  Receipt Date: 20251125
  Transmission Date: 20260118
  Serious: Yes (Other)
  Sender: PFIZER
  Company Number: JP-PFIZER INC-PV202500135921

PATIENT
  Age: 72 Year
  Sex: Female

DRUGS (8)
  1. VORICONAZOLE [Suspect]
     Active Substance: VORICONAZOLE
     Indication: Bronchopulmonary aspergillosis
     Dosage: UNK
     Route: 048
  2. VORICONAZOLE [Suspect]
     Active Substance: VORICONAZOLE
     Indication: Lower respiratory tract infection bacterial
  3. AZITHROMYCIN [Suspect]
     Active Substance: AZITHROMYCIN
     Indication: Lower respiratory tract infection bacterial
     Dosage: UNK
     Route: 048
  4. AZITHROMYCIN [Suspect]
     Active Substance: AZITHROMYCIN
     Indication: Bronchopulmonary aspergillosis
  5. ETHAMBUTOL [Suspect]
     Active Substance: ETHAMBUTOL HYDROCHLORIDE
     Indication: Bronchopulmonary aspergillosis
     Dosage: UNK
     Route: 048
  6. ETHAMBUTOL [Suspect]
     Active Substance: ETHAMBUTOL HYDROCHLORIDE
     Indication: Lower respiratory tract infection bacterial
  7. SITAFLOXACIN [Suspect]
     Active Substance: SITAFLOXACIN
     Indication: Bronchopulmonary aspergillosis
     Dosage: UNK
     Route: 048
  8. SITAFLOXACIN [Suspect]
     Active Substance: SITAFLOXACIN
     Indication: Lower respiratory tract infection bacterial

REACTIONS (1)
  - Pneumatosis intestinalis [Unknown]
